FAERS Safety Report 8926383 (Version 2)
Quarter: 2012Q4

REPORT INFORMATION
  Report Type: 
  Country: JP (occurrence: JP)
  Receive Date: 20121127
  Receipt Date: 20121203
  Transmission Date: 20130627
  Serious: Yes (Hospitalization)
  Sender: FDA-Public Use
  Company Number: JP-GLAXOSMITHKLINE-B0846067A

PATIENT
  Age: 39 Year
  Sex: Female
  Weight: 86 kg

DRUGS (4)
  1. LAMICTAL [Suspect]
     Indication: BIPOLAR DISORDER
     Dosage: 25MG Per day
     Route: 048
     Dates: start: 20121031, end: 20121110
  2. LIMAS [Suspect]
     Indication: BIPOLAR DISORDER
     Dosage: 400MG Twice per day
     Route: 048
  3. RIVOTRIL [Suspect]
     Indication: BIPOLAR I DISORDER
     Route: 048
  4. ZYPREXA [Suspect]
     Indication: BIPOLAR I DISORDER
     Dosage: 5MG Twice per day
     Route: 048

REACTIONS (7)
  - Erythema multiforme [Recovering/Resolving]
  - Rash [Recovering/Resolving]
  - Face oedema [Unknown]
  - Pyrexia [Unknown]
  - Feeling abnormal [Unknown]
  - C-reactive protein increased [Unknown]
  - Neutrophil count increased [Unknown]
